FAERS Safety Report 7396597-2 (Version None)
Quarter: 2011Q1

REPORT INFORMATION
  Report Type: 
  Country: None (occurrence: None)
  Receive Date: 20110328
  Receipt Date: 20110315
  Transmission Date: 20110831
  Serious: Yes (Other)
  Sender: FDA-Public Use
  Company Number: 1000019408

PATIENT
  Age: 74 Year
  Sex: Male

DRUGS (2)
  1. ATHYMIL (MIANSERIN HYDROCHLORIDE)(MIANSERIN HYDROCHLORIDE) [Concomitant]
  2. ESCITALOPRAM OXALATE [Suspect]
     Dosage: 10 MG (10 MG, 1 IN 1 D), ORAL
     Route: 048

REACTIONS (4)
  - JAUNDICE [None]
  - VOMITING [None]
  - ASPARTATE AMINOTRANSFERASE INCREASED [None]
  - ALANINE AMINOTRANSFERASE INCREASED [None]
